FAERS Safety Report 5151887-9 (Version None)
Quarter: 2006Q4

REPORT INFORMATION
  Report Type: 
  Country: None (occurrence: None)
  Receive Date: 20061109
  Receipt Date: 20061031
  Transmission Date: 20070319
  Serious: Yes (Hospitalization)
  Sender: FDA-Public Use
  Company Number: HQWYE792409OCT06

PATIENT
  Age: 64 Year
  Sex: Male

DRUGS (4)
  1. CORDARONE [Suspect]
     Dosage: 200 MG, ORAL
     Route: 048
     Dates: start: 20060901, end: 20060912
  2. RIFADIN [Suspect]
     Dates: start: 20060830, end: 20060912
  3. RIFADIN [Suspect]
     Dates: start: 20060615
  4. TARGOCID [Suspect]
     Dosage: INTRAVENOUS
     Route: 042
     Dates: start: 20060830, end: 20060912

REACTIONS (10)
  - CONDITION AGGRAVATED [None]
  - DERMATITIS EXFOLIATIVE [None]
  - EOSINOPHILIA [None]
  - NEUTROPHIL COUNT DECREASED [None]
  - OSTEOARTHRITIS [None]
  - POSTOPERATIVE RESPIRATORY DISTRESS [None]
  - RED BLOOD CELL COUNT DECREASED [None]
  - TOE AMPUTATION [None]
  - VASCULAR PURPURA [None]
  - WHITE BLOOD CELL COUNT INCREASED [None]
